FAERS Safety Report 5762336-1 (Version None)
Quarter: 2008Q2

REPORT INFORMATION
  Report Type: 
  Country: None (occurrence: None)
  Receive Date: 20080609
  Receipt Date: 20080602
  Transmission Date: 20081010
  Serious: Yes (Congenital Anomaly)
  Sender: FDA-Public Use
  Company Number: PHHY2008FR09808

PATIENT
  Sex: Male
  Weight: 3.3 kg

DRUGS (5)
  1. TEGRETOL [Suspect]
     Dosage: MATERNAL DOSE: 1.2 G/DAY
     Route: 064
  2. VALIUM [Suspect]
     Route: 064
  3. EPITOMAX [Suspect]
     Dosage: MATERNAL DOSE: 800 MG/DAY
     Route: 064
  4. URBANYL [Suspect]
     Dosage: MATERNAL DOSE: 30 MG/DAY
     Route: 064
  5. CANNABIS [Suspect]
     Route: 064

REACTIONS (4)
  - DRUG EXPOSURE DURING PREGNANCY [None]
  - HYPOTONIA [None]
  - IRRITABILITY [None]
  - MULTIPLE CONGENITAL ABNORMALITIES [None]
